FAERS Safety Report 8836862 (Version 1)
Quarter: 2012Q4

REPORT INFORMATION
  Report Type: Spontaneous
  Country: US (occurrence: None)
  Receive Date: 20121012
  Receipt Date: 20121012
  Transmission Date: 20130627
  Serious: Yes (Hospitalization, Other)
  Sender: FDA-Public Use
  Company Number: None

PATIENT

DRUGS (1)
  1. METHYLPREDNISOLONE ACETATE [Suspect]

REACTIONS (13)
  - Influenza like illness [None]
  - Oropharyngeal pain [None]
  - Product quality issue [None]
  - Product quality issue [None]
  - Dizziness [None]
  - Tremor [None]
  - Arthralgia [None]
  - Pyrexia [None]
  - Muscle tightness [None]
  - Pain [None]
  - White blood cell count increased [None]
  - Systemic lupus erythematosus [None]
  - Meningitis fungal [None]
